FAERS Safety Report 5322370-2 (Version None)
Quarter: 2007Q2

REPORT INFORMATION
  Report Type: 
  Country: None (occurrence: None)
  Receive Date: 20070511
  Receipt Date: 20070501
  Transmission Date: 20071010
  Serious: Yes (Other)
  Sender: FDA-Public Use
  Company Number: JP-ASTRAZENECA-2007AP02590

PATIENT
  Age: 56 Year
  Sex: Male

DRUGS (6)
  1. ANAPEINE [Suspect]
     Indication: EPIDURAL ANAESTHESIA
     Route: 008
     Dates: start: 20070418, end: 20070420
  2. ANAPEINE [Suspect]
     Dosage: PCA 3 ML (ANAPEINE ALONE)
     Route: 008
     Dates: start: 20070418, end: 20070420
  3. MARCAINE HYDROCHLORIDE PRESERVATIVE FREE [Concomitant]
     Route: 037
     Dates: start: 20070418, end: 20070418
  4. MARCAINE HYDROCHLORIDE PRESERVATIVE FREE [Concomitant]
     Route: 037
     Dates: start: 20070418, end: 20070418
  5. CARBOCAIN [Concomitant]
     Route: 008
     Dates: start: 20070418, end: 20070418
  6. CARBOCAIN [Concomitant]
     Dosage: TEST DOSE
     Route: 008
     Dates: start: 20070418, end: 20070418

REACTIONS (2)
  - MONOPLEGIA [None]
  - PAIN IN EXTREMITY [None]
